FAERS Safety Report 14661538 (Version 2)
Quarter: 2019Q1

REPORT INFORMATION
  Report Type: Spontaneous
  Country: CA (occurrence: CA)
  Receive Date: 20180320
  Receipt Date: 20190214
  Transmission Date: 20190417
  Serious: Yes (Other)
  Sender: FDA-Public Use
  Company Number: CA-PFIZER INC-2018116238

PATIENT
  Age: 5 Year
  Sex: Male
  Weight: 18 kg

DRUGS (12)
  1. TOPOTECAN [Concomitant]
     Active Substance: TOPOTECAN HYDROCHLORIDE
     Dosage: UNK
     Route: 065
  2. CISPLATIN. [Suspect]
     Active Substance: CISPLATIN
     Indication: NEUROBLASTOMA
     Dosage: UNK
     Route: 042
  3. MELPHALAN. [Concomitant]
     Active Substance: MELPHALAN
     Dosage: UNK
     Route: 065
  4. VINCRISTINE SULFATE. [Suspect]
     Active Substance: VINCRISTINE SULFATE
     Indication: NEUROBLASTOMA
     Dosage: UNK
     Route: 042
  5. DINUTUXIMAB [Concomitant]
     Active Substance: DINUTUXIMAB
     Dosage: UNK
     Route: 065
  6. VANCOMYCIN HCL [Suspect]
     Active Substance: VANCOMYCIN HYDROCHLORIDE
     Dosage: UNK
     Route: 042
  7. TOBRAMYCIN INJECTION USP [Suspect]
     Active Substance: TOBRAMYCIN
     Indication: NEUTROPENIA
     Dosage: UNK
     Route: 042
  8. DOXORUBICIN HYDROCHLORIDE INJECTION [Concomitant]
     Active Substance: DOXORUBICIN HYDROCHLORIDE
     Dosage: UNK
     Route: 065
  9. ETOPOSIDE INJECTION, USP [Concomitant]
     Active Substance: ETOPOSIDE
     Dosage: UNK
     Route: 065
  10. INTERLEUKIN-2 [Concomitant]
     Active Substance: ALDESLEUKIN
     Dosage: UNK
     Route: 065
  11. CYCLOPHOSPHAMIDE. [Concomitant]
     Active Substance: CYCLOPHOSPHAMIDE
     Dosage: POWDER FOR SOLUTION INTRAVENOUS
     Route: 065
  12. CARBOPLATIN. [Suspect]
     Active Substance: CARBOPLATIN
     Indication: NEUROBLASTOMA
     Dosage: UNK
     Route: 042

REACTIONS (2)
  - Ototoxicity [Not Recovered/Not Resolved]
  - Deafness [Not Recovered/Not Resolved]
